FAERS Safety Report 5324941-6 (Version None)
Quarter: 2007Q2

REPORT INFORMATION
  Report Type: 
  Country: None (occurrence: None)
  Receive Date: 20070510
  Receipt Date: 20070510
  Transmission Date: 20071010
  Serious: Yes (Life-Threatening)
  Sender: FDA-Public Use
  Company Number: None

PATIENT
  Age: 68 Year
  Sex: Male
  Weight: 77.5651 kg

DRUGS (1)
  1. ERBITUX [Suspect]
     Indication: NEOPLASM MALIGNANT
     Dosage: 770MG ONE TIME LOAD DOSE IV DRIP
     Route: 041
     Dates: start: 20070509, end: 20070509

REACTIONS (3)
  - DYSPNOEA [None]
  - PRURITUS [None]
  - PULSE ABSENT [None]
